FAERS Safety Report 8306541-9 (Version None)
Quarter: 2012Q2

REPORT INFORMATION
  Report Type: 
  Country: None (occurrence: None)
  Receive Date: 20120420
  Receipt Date: 20120420
  Transmission Date: 20120825
  Serious: Yes (Hospitalization)
  Sender: FDA-Public Use
  Company Number: None

PATIENT
  Age: 83 Year
  Sex: Male
  Weight: 72.67 kg

DRUGS (1)
  1. TRAVOPROST [Suspect]
     Indication: GLAUCOMA
     Dosage: 1 DROPS EVERY DAY EYE
     Route: 031
     Dates: start: 20070104, end: 20080205

REACTIONS (4)
  - OCULAR HYPERAEMIA [None]
  - CONJUNCTIVAL HYPERAEMIA [None]
  - EYE IRRITATION [None]
  - BLEPHARITIS [None]
